FAERS Safety Report 10487906 (Version 1)
Quarter: 2014Q4

REPORT INFORMATION
  Report Type: Spontaneous
  Country: US (occurrence: US)
  Receive Date: 20141001
  Receipt Date: 20141001
  Transmission Date: 20150528
  Serious: Yes (Hospitalization, Other)
  Sender: FDA-Public Use
  Company Number: US-BAUSCH-BL-2014-005951

PATIENT
  Age: 7 Month
  Sex: Male

DRUGS (31)
  1. FLUCYTOSINE. [Suspect]
     Active Substance: FLUCYTOSINE
     Indication: PRODUCT USED FOR UNKNOWN INDICATION
  2. ACTIMMUNE [Suspect]
     Active Substance: INTERFERON GAMMA-1B
     Indication: CONGENITAL HYDROCEPHALUS
     Route: 058
     Dates: start: 201311
  3. CEFPROZIL. [Concomitant]
     Active Substance: CEFPROZIL
     Indication: PRODUCT USED FOR UNKNOWN INDICATION
     Dosage: 125 MG/5 ML
  4. AZITHROMYCIN [Concomitant]
     Active Substance: AZITHROMYCIN ANHYDROUS
     Indication: PRODUCT USED FOR UNKNOWN INDICATION
     Dosage: 100 MG/5 ML
     Route: 048
  5. POTASSIUM CHLORIDE. [Concomitant]
     Active Substance: POTASSIUM CHLORIDE
     Indication: PRODUCT USED FOR UNKNOWN INDICATION
  6. HYDROCORTISONE. [Concomitant]
     Active Substance: HYDROCORTISONE
     Indication: PRODUCT USED FOR UNKNOWN INDICATION
     Route: 061
  7. POLY-VI-SOL WITH IRON [Concomitant]
     Indication: PRODUCT USED FOR UNKNOWN INDICATION
  8. BACLOFEN. [Concomitant]
     Active Substance: BACLOFEN
     Indication: PRODUCT USED FOR UNKNOWN INDICATION
     Route: 048
  9. KEPPRA [Concomitant]
     Active Substance: LEVETIRACETAM
     Indication: PRODUCT USED FOR UNKNOWN INDICATION
  10. MAGNESIUM GLUCONATE [Concomitant]
     Active Substance: MAGNESIUM GLUCONATE
     Indication: PRODUCT USED FOR UNKNOWN INDICATION
  11. VORICONAZOLE. [Concomitant]
     Active Substance: VORICONAZOLE
     Indication: PRODUCT USED FOR UNKNOWN INDICATION
  12. SIMETHICONE [Concomitant]
     Active Substance: DIMETHICONE\SILICON DIOXIDE\SIMETHICONE
     Indication: PRODUCT USED FOR UNKNOWN INDICATION
     Dosage: 40 MG/0.6 ML
  13. NYSTATIN. [Concomitant]
     Active Substance: NYSTATIN
     Indication: PRODUCT USED FOR UNKNOWN INDICATION
     Dosage: 100,000 UNITS/G
     Route: 061
  14. DIAZEPAM. [Concomitant]
     Active Substance: DIAZEPAM
     Indication: PRODUCT USED FOR UNKNOWN INDICATION
     Route: 054
  15. FLUOCINOLONE ACETONIDE. [Concomitant]
     Active Substance: FLUOCINOLONE ACETONIDE
     Indication: PRODUCT USED FOR UNKNOWN INDICATION
     Route: 061
  16. MAGNESIUM GLUCONATE [Concomitant]
     Active Substance: MAGNESIUM GLUCONATE
     Indication: PRODUCT USED FOR UNKNOWN INDICATION
  17. CLARATIN [Concomitant]
     Indication: PRODUCT USED FOR UNKNOWN INDICATION
     Dosage: 5 MG/5 ML
  18. SODIUM CHLORIDE. [Concomitant]
     Active Substance: SODIUM CHLORIDE
     Indication: PRODUCT USED FOR UNKNOWN INDICATION
     Dosage: 1 SPRAY EACH NOSTRIL
     Route: 045
  19. CLONAZEPAM. [Suspect]
     Active Substance: CLONAZEPAM
     Indication: POSTURING
     Route: 048
  20. LANSOPRAZOLE. [Concomitant]
     Active Substance: LANSOPRAZOLE
     Indication: PRODUCT USED FOR UNKNOWN INDICATION
     Route: 048
  21. SULFAMETHOXAZOLE/TRIMETHOPRIM [Concomitant]
     Indication: PRODUCT USED FOR UNKNOWN INDICATION
     Dosage: 200 MG-40 MG/5 ML
  22. VITAMIN D3 [Concomitant]
     Active Substance: CHOLECALCIFEROL
     Indication: PRODUCT USED FOR UNKNOWN INDICATION
  23. OXCARBAZEPINE. [Concomitant]
     Active Substance: OXCARBAZEPINE
     Indication: PRODUCT USED FOR UNKNOWN INDICATION
     Dosage: 300 MG/5 ML
  24. ONDANSETRON [Concomitant]
     Active Substance: ONDANSETRON
     Indication: PRODUCT USED FOR UNKNOWN INDICATION
     Dosage: 4 MG/5 ML
     Route: 048
  25. BACTROBAN [Concomitant]
     Active Substance: MUPIROCIN\MUPIROCIN CALCIUM
     Indication: PRODUCT USED FOR UNKNOWN INDICATION
     Route: 061
  26. DIPHENHYDRAMINE [Concomitant]
     Active Substance: DIPHENHYDRAMINE
     Indication: PRODUCT USED FOR UNKNOWN INDICATION
     Dosage: 12.5 MG/5 ML
  27. PHOS-NAK [Concomitant]
     Indication: PRODUCT USED FOR UNKNOWN INDICATION
     Dosage: 250-160-280
     Route: 048
  28. HYPER-SAL [Concomitant]
     Indication: PRODUCT USED FOR UNKNOWN INDICATION
  29. CLONIDINE. [Concomitant]
     Active Substance: CLONIDINE
     Indication: PRODUCT USED FOR UNKNOWN INDICATION
     Dosage: 0.1 MG/ML
  30. ONDANSETRON [Concomitant]
     Active Substance: ONDANSETRON
     Indication: PRODUCT USED FOR UNKNOWN INDICATION
  31. BACITRACIN. [Concomitant]
     Active Substance: BACITRACIN
     Indication: PRODUCT USED FOR UNKNOWN INDICATION
     Route: 061

REACTIONS (60)
  - Pneumonia [Unknown]
  - Hypophagia [Unknown]
  - Oxygen consumption increased [Unknown]
  - Prealbumin decreased [Unknown]
  - Eosinophil percentage increased [Unknown]
  - Immunodeficiency [Unknown]
  - Metabolic acidosis [Unknown]
  - Miliaria [Unknown]
  - Folliculitis [Unknown]
  - Fungal oesophagitis [Unknown]
  - Systemic mycosis [Unknown]
  - Candida infection [Unknown]
  - Anaemia [Unknown]
  - Lung infiltration [Unknown]
  - Nasal congestion [Unknown]
  - Heart rate increased [Unknown]
  - Gamma-glutamyltransferase increased [Unknown]
  - Neutrophil function disorder [Unknown]
  - Post inflammatory pigmentation change [Unknown]
  - Staphylococcal skin infection [Unknown]
  - Dermatitis diaper [Unknown]
  - Device related infection [Unknown]
  - Tachypnoea [Not Recovered/Not Resolved]
  - Fungal infection [Unknown]
  - Dysphagia [Unknown]
  - Hypernatraemia [Unknown]
  - Parainfluenzae virus infection [Unknown]
  - Gastroenteritis [Unknown]
  - Klebsiella infection [Unknown]
  - Neutropenia [Unknown]
  - Nasopharyngitis [Unknown]
  - Hepatosplenomegaly [Unknown]
  - Tachycardia [Not Recovered/Not Resolved]
  - Pulmonary mass [Unknown]
  - Diarrhoea [Unknown]
  - Rash papular [Unknown]
  - Off label use [Unknown]
  - Hypoxia [Unknown]
  - Ingrowing nail [Unknown]
  - Infection susceptibility increased [Unknown]
  - Pulmonary mycosis [Unknown]
  - Clostridium difficile colitis [Unknown]
  - Blood urea decreased [Unknown]
  - Strabismus [Unknown]
  - Hypotonia [Unknown]
  - Bone marrow failure [Unknown]
  - Cough [Unknown]
  - CSF shunt operation [Unknown]
  - Monocyte percentage increased [Unknown]
  - White blood cell analysis abnormal [Unknown]
  - Osteopenia [Unknown]
  - Histiocytosis haematophagic [Unknown]
  - Gastroenteritis rotavirus [Unknown]
  - Dermatitis [Unknown]
  - Carbon dioxide increased [Unknown]
  - Sleep apnoea syndrome [Unknown]
  - Feeding disorder [Unknown]
  - Cytogenetic abnormality [Unknown]
  - Pyrexia [Recovered/Resolved]
  - Mental disorder [Unknown]

NARRATIVE: CASE EVENT DATE: 20131204
